FAERS Safety Report 6865109-1 (Version None)
Quarter: 2010Q3

REPORT INFORMATION
  Report Type: 
  Country: None (occurrence: None)
  Receive Date: 20100721
  Receipt Date: 20080529
  Transmission Date: 20110219
  Serious: Yes (Other)
  Sender: FDA-Public Use
  Company Number: US-PFIZER INC-2008032834

PATIENT
  Sex: Female
  Weight: 72.6 kg

DRUGS (3)
  1. CHANTIX [Suspect]
     Indication: SMOKING CESSATION THERAPY
     Route: 048
     Dates: start: 20080401, end: 20080408
  2. EFFEXOR [Concomitant]
  3. LAMICTAL [Concomitant]

REACTIONS (1)
  - SUICIDAL IDEATION [None]
